FAERS Safety Report 10204755 (Version 1)
Quarter: 2014Q2

REPORT INFORMATION
  Report Type: Spontaneous
  Country: FR (occurrence: FR)
  Receive Date: 20140529
  Receipt Date: 20140529
  Transmission Date: 20141212
  Serious: Yes (Life-Threatening, Hospitalization, Other)
  Sender: FDA-Public Use
  Company Number: FR-ASTRAZENECA-2014SE36359

PATIENT
  Age: 531 Month
  Sex: Male

DRUGS (4)
  1. XEROQUEL [Suspect]
     Indication: MANIA
     Route: 048
     Dates: start: 20140326
  2. DEPAKOTE [Concomitant]
     Route: 048
     Dates: start: 20140324
  3. VALIUM [Concomitant]
     Route: 048
  4. IMOVANE [Concomitant]
     Route: 048

REACTIONS (2)
  - Faecaloma [Unknown]
  - Intestinal obstruction [Recovered/Resolved]
